FAERS Safety Report 10935804 (Version 2)
Quarter: 2015Q1

REPORT INFORMATION
  Report Type: Spontaneous
  Country: US (occurrence: US)
  Receive Date: 20150320
  Receipt Date: 20150324
  Transmission Date: 20150721
  Serious: Yes (Hospitalization, Other)
  Sender: FDA-Public Use
  Company Number: US-009507513-1110USA00172

PATIENT
  Sex: Female
  Weight: 52.15 kg

DRUGS (10)
  1. ALENDRONATE SODIUM. [Suspect]
     Active Substance: ALENDRONATE SODIUM
     Indication: OSTEOPOROSIS
     Route: 048
     Dates: start: 20030922, end: 20100908
  2. CYANOCOBALAMIN. [Concomitant]
     Active Substance: CYANOCOBALAMIN
     Indication: ROUTINE HEALTH MAINTENANCE
     Dosage: UNK, QD
  3. FOSAMAX PLUS D [Suspect]
     Active Substance: ALENDRONATE SODIUM\CHOLECALCIFEROL
     Indication: OSTEOPOROSIS
     Dosage: 70 MG, UNK
     Route: 048
     Dates: start: 20060926, end: 2010
  4. FOSAMAX [Suspect]
     Active Substance: ALENDRONATE SODIUM
     Indication: OSTEOPOROSIS
     Dosage: 70 MG, UNK
     Route: 048
     Dates: start: 1996, end: 2010
  5. ACTONEL [Suspect]
     Active Substance: RISEDRONATE SODIUM
     Indication: OSTEOPOROSIS
     Dosage: 150 MG, UNK
     Route: 048
     Dates: start: 201009, end: 2011
  6. CALCIUM (UNSPECIFIED) [Concomitant]
     Active Substance: CALCIUM
     Indication: ROUTINE HEALTH MAINTENANCE
     Dosage: UNK, TID
  7. ESTROGEN NOS [Concomitant]
     Active Substance: ESTROGENS
     Indication: HORMONE THERAPY
     Dosage: UNK
     Dates: start: 1991, end: 2006
  8. VITAMINS (UNSPECIFIED) [Concomitant]
     Active Substance: VITAMINS
     Indication: ROUTINE HEALTH MAINTENANCE
     Route: 048
  9. IRON (UNSPECIFIED) [Concomitant]
     Active Substance: IRON
     Indication: ROUTINE HEALTH MAINTENANCE
     Dosage: UNK, QD
  10. FOLIC ACID. [Concomitant]
     Active Substance: FOLIC ACID
     Indication: ROUTINE HEALTH MAINTENANCE
     Dosage: UNK, QD

REACTIONS (46)
  - Somnolence [Unknown]
  - Hypercholesterolaemia [Unknown]
  - Osteoarthritis [Unknown]
  - Airway complication of anaesthesia [Unknown]
  - Femur fracture [Unknown]
  - Anaphylactic reaction [Unknown]
  - Humerus fracture [Unknown]
  - Impaired healing [Unknown]
  - Vitamin B12 deficiency [Unknown]
  - Wound infection [Recovered/Resolved]
  - Fall [Unknown]
  - Aortic valve incompetence [Unknown]
  - Osteotomy [Unknown]
  - Device breakage [Unknown]
  - Femur fracture [Unknown]
  - Open reduction of fracture [Unknown]
  - Femur fracture [Unknown]
  - Femur fracture [Recovered/Resolved]
  - Hip arthroplasty [Unknown]
  - Medical device complication [Unknown]
  - Arthrodesis [Unknown]
  - Upper limb fracture [Unknown]
  - Fall [Unknown]
  - Hip arthroplasty [Unknown]
  - Anaemia of chronic disease [Unknown]
  - Iron deficiency anaemia [Unknown]
  - Femur fracture [Unknown]
  - Open reduction of fracture [Unknown]
  - Medical device complication [Unknown]
  - Back pain [Unknown]
  - Fracture nonunion [Unknown]
  - Debridement [Recovered/Resolved]
  - Foot operation [Unknown]
  - Hypothyroidism [Unknown]
  - Dyspnoea [Recovering/Resolving]
  - Hypertension [Unknown]
  - Presyncope [Unknown]
  - Arthralgia [Unknown]
  - Diarrhoea [Recovering/Resolving]
  - Intramedullary rod insertion [Recovered/Resolved]
  - Lower limb fracture [Unknown]
  - Knee arthroplasty [Unknown]
  - Urinary tract infection [Unknown]
  - Hypotension [Unknown]
  - Seizure [Unknown]
  - Arthrodesis [Unknown]

NARRATIVE: CASE EVENT DATE: 1997
